FAERS Safety Report 8961367 (Version 1)
Quarter: 2012Q4

REPORT INFORMATION
  Report Type: 
  Country: US (occurrence: US)
  Receive Date: 20121213
  Receipt Date: 20121213
  Transmission Date: 20130627
  Serious: No
  Sender: FDA-Public Use
  Company Number: US-ALLERGAN-1206242US

PATIENT
  Sex: Female

DRUGS (3)
  1. ACZONE [Suspect]
     Indication: ROSACEA
     Dosage: thin smear to affected area hs
     Route: 061
     Dates: start: 20120427
  2. SYNTHROID [Concomitant]
     Indication: HYPOTHYROIDISM
     Dosage: daily
     Route: 048
  3. DEXILANT [Concomitant]
     Indication: GERD
     Dosage: daily
     Route: 048

REACTIONS (2)
  - Burning sensation [Recovered/Resolved]
  - Erythema [Recovered/Resolved]
